FAERS Safety Report 6916416-5 (Version None)
Quarter: 2010Q3

REPORT INFORMATION
  Report Type: 
  Country: None (occurrence: None)
  Receive Date: 20100810
  Receipt Date: 20100803
  Transmission Date: 20110219
  Serious: Yes (Hospitalization, Other)
  Sender: FDA-Public Use
  Company Number: US-B.I. PHARMACEUTICALS,INC./RIDGEFIELD-2010-BP-08912PF

PATIENT
  Sex: Female

DRUGS (10)
  1. SPIRIVA [Suspect]
     Dosage: 18 MCG
     Route: 055
     Dates: start: 20100129
  2. MS CONTIN [Suspect]
     Dosage: 90 MG
     Route: 048
     Dates: start: 20100129
  3. REMERON [Suspect]
     Route: 048
     Dates: start: 20100129
  4. DILANTIN [Suspect]
     Dates: end: 20100314
  5. KEPPRA [Suspect]
     Dosage: 3000 MG
     Route: 048
  6. ADVAIR DISKUS 100/50 [Suspect]
     Dates: start: 20100127
  7. ALBUTEROL [Suspect]
     Dates: start: 20100129
  8. DECADRON [Suspect]
     Dosage: 8 MG
     Dates: start: 20100129
  9. DOUBLE BLINDED STUDY MEDICATION [Suspect]
     Indication: PROPHYLAXIS
     Dates: start: 20100203
  10. WHOLE BRAIN RADIOTHERAPY [Suspect]
     Dates: start: 20100203, end: 20100219

REACTIONS (22)
  - ATELECTASIS [None]
  - BODY TEMPERATURE DECREASED [None]
  - BODY TEMPERATURE INCREASED [None]
  - HAEMATOCRIT DECREASED [None]
  - HAEMOGLOBIN DECREASED [None]
  - HILAR LYMPHADENOPATHY [None]
  - LUNG NEOPLASM MALIGNANT [None]
  - LYMPHOCYTE COUNT DECREASED [None]
  - MEAN CELL HAEMOGLOBIN [None]
  - METASTASES TO CENTRAL NERVOUS SYSTEM [None]
  - METASTASES TO KIDNEY [None]
  - METASTASES TO SPINE [None]
  - MOBILITY DECREASED [None]
  - NEUTROPHIL COUNT INCREASED [None]
  - PLATELET COUNT DECREASED [None]
  - PROTHROMBIN TIME PROLONGED [None]
  - PULMONARY EMBOLISM [None]
  - PULMONARY MASS [None]
  - RED BLOOD CELL COUNT DECREASED [None]
  - RED CELL DISTRIBUTION WIDTH INCREASED [None]
  - RESPIRATORY RATE INCREASED [None]
  - WHITE BLOOD CELL COUNT INCREASED [None]
